FAERS Safety Report 8304746-4 (Version None)
Quarter: 2012Q2

REPORT INFORMATION
  Report Type: 
  Country: None (occurrence: None)
  Receive Date: 20120423
  Receipt Date: 20120417
  Transmission Date: 20120825
  Serious: Yes (Life-Threatening, Hospitalization)
  Sender: FDA-Public Use
  Company Number: FR-ASTRAZENECA-2012SE25443

PATIENT
  Sex: Female

DRUGS (8)
  1. IMOVANE [Suspect]
     Indication: INSOMNIA
     Route: 048
     Dates: end: 20111108
  2. TRIHEXYPHENIDYL HYDROCHLORIDE [Concomitant]
     Route: 048
     Dates: start: 20111104, end: 20111108
  3. SECTRAL [Concomitant]
     Route: 048
  4. QUETIAPINE FUMARATE [Suspect]
     Indication: DEPRESSION
     Route: 048
     Dates: start: 20111108, end: 20111108
  5. OXAZEPAM [Suspect]
     Route: 048
     Dates: start: 20111110
  6. DEPAKOTE [Suspect]
     Route: 048
     Dates: start: 20111107, end: 20111108
  7. DEPAKOTE [Suspect]
     Route: 048
     Dates: start: 20111110
  8. OXAZEPAM [Suspect]
     Indication: ANXIETY
     Route: 048
     Dates: start: 20111107, end: 20111109

REACTIONS (2)
  - LOSS OF CONSCIOUSNESS [None]
  - DISORIENTATION [None]
